FAERS Safety Report 7705288-7 (Version None)
Quarter: 2011Q3

REPORT INFORMATION
  Report Type: 
  Country: None (occurrence: None)
  Receive Date: 20110822
  Receipt Date: 20110822
  Transmission Date: 20111222
  Serious: Yes (Other)
  Sender: FDA-Public Use
  Company Number: None

PATIENT
  Sex: Male
  Weight: 82.5547 kg

DRUGS (2)
  1. INTELENCE [Suspect]
     Indication: HIV INFECTION
     Dosage: 200 PO BID
     Route: 048
     Dates: start: 20110802
  2. TRUVADA [Concomitant]

REACTIONS (3)
  - RASH GENERALISED [None]
  - PRURITUS [None]
  - URTICARIA [None]
